FAERS Safety Report 25767917 (Version 1)
Quarter: 2025Q3

REPORT INFORMATION
  Report Type: Spontaneous
  Country: US (occurrence: US)
  Receive Date: 20250905
  Receipt Date: 20250905
  Transmission Date: 20251021
  Serious: No
  Sender: DOMPE FARMACEUTICI
  Company Number: US-FARMAPROD-202505-1628

PATIENT
  Sex: Female
  Weight: 66.68 kg

DRUGS (21)
  1. OXERVATE [Suspect]
     Active Substance: CENEGERMIN-BKBJ
     Indication: Neurotrophic keratopathy
     Route: 047
     Dates: start: 20250410
  2. NITROFURANTOIN [Concomitant]
     Active Substance: NITROFURANTOIN
  3. EYLEA HD [Concomitant]
     Active Substance: AFLIBERCEPT
  4. ROSUVASTATIN CALCIUM [Concomitant]
     Active Substance: ROSUVASTATIN CALCIUM
  5. METOPROLOL SUCCINATE [Concomitant]
     Active Substance: METOPROLOL SUCCINATE
  6. MAGNESIUM [Concomitant]
     Active Substance: MAGNESIUM
  7. CYCLOSPORINE [Concomitant]
     Active Substance: CYCLOSPORINE
  8. ASPIRIN [Concomitant]
     Active Substance: ASPIRIN
  9. PREDNISOLONE ACETATE [Concomitant]
     Active Substance: PREDNISOLONE ACETATE
  10. METOPROLOL SUCCINATE [Concomitant]
     Active Substance: METOPROLOL SUCCINATE
  11. EYSUVIS [Concomitant]
     Active Substance: LOTEPREDNOL ETABONATE
  12. LATANOPROST [Concomitant]
     Active Substance: LATANOPROST
  13. FOSFOMYCIN TROMETHAMINE [Concomitant]
     Active Substance: FOSFOMYCIN TROMETHAMINE
  14. DILTIAZEM [Concomitant]
     Active Substance: DILTIAZEM
  15. RESTASIS [Concomitant]
     Active Substance: CYCLOSPORINE
  16. MAGNESIUM OXIDE [Concomitant]
     Active Substance: MAGNESIUM OXIDE
  17. COMBIGAN [Concomitant]
     Active Substance: BRIMONIDINE TARTRATE\TIMOLOL MALEATE
  18. MOXIFLOXACIN [Concomitant]
     Active Substance: MOXIFLOXACIN
  19. IPRATROPIUM BROMIDE [Concomitant]
     Active Substance: IPRATROPIUM BROMIDE
  20. MYRBETRIQ [Concomitant]
     Active Substance: MIRABEGRON
  21. METOPROLOL SUCCINATE [Concomitant]
     Active Substance: METOPROLOL SUCCINATE

REACTIONS (1)
  - Urinary tract infection [Unknown]
